FAERS Safety Report 10421113 (Version 1)
Quarter: 2014Q3

REPORT INFORMATION
  Report Type: Spontaneous
  Country: US (occurrence: None)
  Receive Date: 20140722
  Receipt Date: 20140722
  Transmission Date: 20150326
  Serious: No
  Sender: FDA-Public Use
  Company Number: 163-10004-14060450

PATIENT
  Age: 44 Year
  Sex: Male
  Weight: 94.8 kg

DRUGS (6)
  1. AMBIEN [Suspect]
     Active Substance: ZOLPIDEM TARTRATE
     Indication: INSOMNIA
     Dates: start: 201405
  2. SULFASALAZINE. [Concomitant]
     Active Substance: SULFASALAZINE
  3. LISINOPRIL. [Concomitant]
     Active Substance: LISINOPRIL
  4. ETODOLAC. [Concomitant]
     Active Substance: ETODOLAC
  5. OTEZLA [Suspect]
     Active Substance: APREMILAST
     Indication: PSORIASIS
     Route: 048
     Dates: start: 20140519
  6. AMLODIPINE [Concomitant]
     Active Substance: AMLODIPINE BESYLATE

REACTIONS (5)
  - Feeling jittery [None]
  - Diarrhoea [None]
  - Somnolence [None]
  - Headache [None]
  - Insomnia [None]

NARRATIVE: CASE EVENT DATE: 201405
